FAERS Safety Report 10064021 (Version 3)
Quarter: 2014Q2

REPORT INFORMATION
  Report Type: Spontaneous
  Country: CH (occurrence: CH)
  Receive Date: 20140408
  Receipt Date: 20140507
  Transmission Date: 20141212
  Serious: Yes (Other)
  Sender: FDA-Public Use
  Company Number: CH-ROCHE-1377642

PATIENT
  Sex: Male
  Weight: 65 kg

DRUGS (2)
  1. AVASTIN [Suspect]
     Indication: NEUROFIBROMATOSIS
     Route: 065
     Dates: start: 201308, end: 201309
  2. AVASTIN [Suspect]
     Route: 065
     Dates: start: 20140417

REACTIONS (3)
  - Meningioma surgery [Recovered/Resolved]
  - Disease progression [Not Recovered/Not Resolved]
  - Off label use [Unknown]
